FAERS Safety Report 10396828 (Version 1)
Quarter: 2014Q3

REPORT INFORMATION
  Report Type: Report from Study
  Country: US (occurrence: US)
  Receive Date: 20140820
  Receipt Date: 20140820
  Transmission Date: 20150326
  Serious: Yes (Death)
  Sender: FDA-Public Use
  Company Number: US-TAKEDA-2014MPI002228

PATIENT
  Age: 44 Year
  Sex: Female
  Weight: 53.6 kg

DRUGS (6)
  1. TYLENOL [Concomitant]
     Active Substance: ACETAMINOPHEN
     Dosage: 1-2, Q6HR PRN
  2. VELCADE [Suspect]
     Active Substance: BORTEZOMIB
     Indication: PLASMA CELL MYELOMA
     Dosage: 1.3 MG/M2, 1/WEEK
     Route: 042
     Dates: start: 20110718, end: 20110801
  3. ONDANSETRON [Concomitant]
     Active Substance: ONDANSETRON
     Dosage: 0.5 DF, TID (8 MG 0.5 TAB) PRN
  4. SENNA PLUS                         /00142201/ [Concomitant]
     Dosage: 1 DF, BID (8.6-50)
  5. FUROSEMIDE. [Concomitant]
     Active Substance: FUROSEMIDE
     Dosage: 40 MG, QD
  6. TRAMADOL [Concomitant]
     Active Substance: TRAMADOL
     Dosage: 50 MG, Q8HR PRN

REACTIONS (1)
  - Death [Fatal]

NARRATIVE: CASE EVENT DATE: 20110808
